FAERS Safety Report 7969295-1 (Version None)
Quarter: 2011Q4

REPORT INFORMATION
  Report Type: 
  Country: None (occurrence: None)
  Receive Date: 20111209
  Receipt Date: 20111130
  Transmission Date: 20120403
  Serious: Yes (Hospitalization)
  Sender: FDA-Public Use
  Company Number: US-ASTRAZENECA-2011SE62089

PATIENT
  Age: 63 Year
  Sex: Female
  Weight: 127 kg

DRUGS (14)
  1. NEXIUM [Suspect]
     Indication: GASTROOESOPHAGEAL REFLUX DISEASE
     Route: 048
  2. VITAMIN TAB [Concomitant]
  3. CYMBALTA [Concomitant]
  4. ALLOPURINOL [Concomitant]
  5. SIMVASTATIN [Concomitant]
  6. AMBIEN [Concomitant]
  7. PLAVIX [Concomitant]
  8. ZOCOR [Concomitant]
  9. PRILOSEC [Suspect]
  10. TOMA [Concomitant]
  11. LASIX [Concomitant]
  12. VICON FORTE [Concomitant]
  13. ONGLYZA [Concomitant]
  14. ZYLOPRIM [Concomitant]

REACTIONS (4)
  - FATIGUE [None]
  - OFF LABEL USE [None]
  - HEART RATE IRREGULAR [None]
  - DIABETES MELLITUS [None]
